FAERS Safety Report 13239802 (Version 1)
Quarter: 2017Q1

REPORT INFORMATION
  Report Type: Spontaneous
  Country: BR (occurrence: BR)
  Receive Date: 20170216
  Receipt Date: 20170216
  Transmission Date: 20170428
  Serious: Yes (Other)
  Sender: FDA-Public Use
  Company Number: BR-GUERBET LLC-1063198

PATIENT
  Age: 39 Year
  Sex: Male

DRUGS (4)
  1. OPTIRAY [Suspect]
     Active Substance: IOVERSOL
     Indication: COMPUTERISED TOMOGRAM
     Route: 042
     Dates: start: 20170204, end: 20170204
  2. KETOPROFEN. [Concomitant]
     Active Substance: KETOPROFEN
     Route: 042
     Dates: start: 20170204
  3. INSULIN [Concomitant]
     Active Substance: INSULIN NOS
     Dates: start: 20170204
  4. ZOFRAN [Concomitant]
     Active Substance: ONDANSETRON HYDROCHLORIDE
     Route: 042
     Dates: start: 20170204

REACTIONS (2)
  - Throat tightness [Recovered/Resolved]
  - Dysphonia [Recovered/Resolved]

NARRATIVE: CASE EVENT DATE: 20170204
